FAERS Safety Report 5009767-5 (Version None)
Quarter: 2006Q2

REPORT INFORMATION
  Report Type: 
  Country: None (occurrence: None)
  Receive Date: 20060524
  Receipt Date: 19950911
  Transmission Date: 20061013
  Serious: Yes (Hospitalization)
  Sender: FDA-Public Use
  Company Number: AU-ROCHE-51295

PATIENT
  Age: 76 Year
  Sex: Male
  Weight: 70 kg

DRUGS (1)
  1. ISOTRETINOIN [Suspect]
     Indication: NEOPLASM PROPHYLAXIS
     Route: 048
     Dates: start: 19940426

REACTIONS (4)
  - FALL [None]
  - HEADACHE [None]
  - NECK PAIN [None]
  - SUBARACHNOID HAEMORRHAGE [None]
